FAERS Safety Report 4356245-2 (Version None)
Quarter: 2004Q2

REPORT INFORMATION
  Report Type: 
  Country: None (occurrence: None)
  Receive Date: 20040511
  Receipt Date: 20040424
  Transmission Date: 20050107
  Serious: Yes (Hospitalization)
  Sender: FDA-Public Use
  Company Number: CA-SHR-04-024482

PATIENT
  Age: 29 Year
  Sex: Female

DRUGS (2)
  1. BETASERON [Suspect]
     Indication: MULTIPLE SCLEROSIS
     Dosage: 8 MIU, EVERY 2D, SUBCUTANEOUS
     Route: 058
     Dates: start: 20020731
  2. DIFLUNISAL [Concomitant]

REACTIONS (8)
  - BREAST CYST [None]
  - BREAST DISCOMFORT [None]
  - ERYTHEMA [None]
  - INFECTED CYST [None]
  - INFLAMMATION [None]
  - KELOID SCAR [None]
  - PURULENCE [None]
  - SELF-MEDICATION [None]
